FAERS Safety Report 17396603 (Version 3)
Quarter: 2020Q1

REPORT INFORMATION
  Report Type: Spontaneous
  Country: US (occurrence: US)
  Receive Date: 20200210
  Receipt Date: 20200323
  Transmission Date: 20200409
  Serious: Yes (Hospitalization, Other)
  Sender: FDA-Public Use
  Company Number: US-PFIZER INC-2020053216

PATIENT
  Age: 56 Year
  Sex: Female

DRUGS (1)
  1. XELJANZ XR [Suspect]
     Active Substance: TOFACITINIB CITRATE
     Dosage: 11 MG, UNK
     Dates: start: 201912

REACTIONS (6)
  - Haemoglobin decreased [Unknown]
  - Blood iron decreased [Unknown]
  - Nasopharyngitis [Unknown]
  - Haemorrhage [Unknown]
  - Malaise [Unknown]
  - Haemoglobin abnormal [Unknown]
